FAERS Safety Report 11153303 (Version 1)
Quarter: 2015Q2

REPORT INFORMATION
  Report Type: Spontaneous
  Country: US (occurrence: US)
  Receive Date: 20150601
  Receipt Date: 20150601
  Transmission Date: 20150821
  Serious: Yes (Death, Other)
  Sender: FDA-Public Use
  Company Number: PHHY2015US063897

PATIENT
  Age: 67 Year
  Sex: Female

DRUGS (2)
  1. CYTARABINE. [Suspect]
     Active Substance: CYTARABINE
     Indication: ACUTE LYMPHOCYTIC LEUKAEMIA RECURRENT
     Route: 065
  2. FLUDARABINE [Suspect]
     Active Substance: FLUDARABINE PHOSPHATE
     Indication: ACUTE LYMPHOCYTIC LEUKAEMIA RECURRENT
     Route: 065

REACTIONS (7)
  - Focal segmental glomerulosclerosis [Fatal]
  - Proteinuria [Fatal]
  - Fibrosis [Fatal]
  - Atrophy [Fatal]
  - Uraemic encephalopathy [Fatal]
  - Generalised oedema [Fatal]
  - Disease progression [Fatal]
